FAERS Safety Report 6771213-9 (Version None)
Quarter: 2010Q2

REPORT INFORMATION
  Report Type: 
  Country: None (occurrence: None)
  Receive Date: 20100614
  Receipt Date: 20100608
  Transmission Date: 20101027
  Serious: Yes (Hospitalization)
  Sender: FDA-Public Use
  Company Number: CL-128-2010

PATIENT
  Age: 51 Year
  Sex: Female

DRUGS (2)
  1. METRONIDAZOLE [Suspect]
     Indication: VULVOVAGINAL MYCOTIC INFECTION
     Dosage: 500MG QD ORAL ROUTE
     Route: 048
     Dates: start: 20100520, end: 20100524
  2. ONDANSETRON IN 5% DEXTROSE (ZOFRAN/DEXTROSE) [Suspect]
     Indication: NAUSEA
     Dosage: INTRAVENOUS
     Route: 042
     Dates: start: 20100525, end: 20100525

REACTIONS (7)
  - ABDOMINAL PAIN [None]
  - ABDOMINAL PAIN UPPER [None]
  - HAEMATOCHEZIA [None]
  - NAUSEA [None]
  - PNEUMONIA [None]
  - RETCHING [None]
  - VOMITING [None]
